FAERS Safety Report 13353855 (Version 1)
Quarter: 2017Q1

REPORT INFORMATION
  Report Type: Spontaneous
  Country: US (occurrence: US)
  Receive Date: 20170320
  Receipt Date: 20170320
  Transmission Date: 20170429
  Serious: No
  Sender: FDA-Public Use
  Company Number: None

PATIENT
  Age: 36 Year
  Sex: Female
  Weight: 67.5 kg

DRUGS (7)
  1. TIZANIDINE. [Concomitant]
     Active Substance: TIZANIDINE
  2. CLARITIN [Concomitant]
     Active Substance: LORATADINE
  3. DULOXETINE. [Concomitant]
     Active Substance: DULOXETINE
  4. SPIRONOLACTONE. [Concomitant]
     Active Substance: SPIRONOLACTONE
  5. TALTZ [Suspect]
     Active Substance: IXEKIZUMAB
     Indication: PSORIASIS
     Dosage: ?          OTHER FREQUENCY:Q4WEEKS;?
     Route: 058
  6. VITAMINS [Concomitant]
     Active Substance: VITAMINS
  7. HYDROCODONE [Concomitant]
     Active Substance: HYDROCODONE

REACTIONS (3)
  - Stomatitis [None]
  - Nasal ulcer [None]
  - Acne [None]

NARRATIVE: CASE EVENT DATE: 20170228
